FAERS Safety Report 6795818-4 (Version None)
Quarter: 2010Q2

REPORT INFORMATION
  Report Type: 
  Country: None (occurrence: None)
  Receive Date: 20100625
  Receipt Date: 20100617
  Transmission Date: 20101027
  Serious: Yes (Other)
  Sender: FDA-Public Use
  Company Number: A0833381A

PATIENT
  Sex: Female
  Weight: 113.6 kg

DRUGS (3)
  1. AVANDIA [Suspect]
     Indication: DIABETES MELLITUS
     Dosage: 4MG PER DAY
     Route: 048
     Dates: start: 20000101, end: 20060101
  2. GLUCOPHAGE [Concomitant]
  3. HUMULIN R [Concomitant]

REACTIONS (4)
  - CARDIOVASCULAR DISORDER [None]
  - CORONARY ARTERY DISEASE [None]
  - INTRACARDIAC THROMBUS [None]
  - PERIPHERAL VASCULAR DISORDER [None]
